FAERS Safety Report 10370275 (Version 2)
Quarter: 2014Q3

REPORT INFORMATION
  Report Type: Spontaneous
  Country: US (occurrence: US)
  Receive Date: 20140808
  Receipt Date: 20140825
  Transmission Date: 20150326
  Serious: Yes (Hospitalization, Disabling, Other)
  Sender: FDA-Public Use
  Company Number: US-BAYER-2014-114895

PATIENT
  Age: 49 Year
  Sex: Male

DRUGS (5)
  1. BETASERON [Suspect]
     Active Substance: INTERFERON BETA-1B
     Indication: MULTIPLE SCLEROSIS
     Dosage: UNK
     Dates: start: 201404
  2. BETASERON [Suspect]
     Active Substance: INTERFERON BETA-1B
     Indication: MULTIPLE SCLEROSIS
     Dosage: 8 MIU, QOD
     Route: 058
     Dates: start: 20131224
  3. TYSABRI [Suspect]
     Active Substance: NATALIZUMAB
     Dosage: UNK
     Dates: start: 2013
  4. AVONEX [Suspect]
     Active Substance: INTERFERON BETA-1A
     Dosage: UNK
     Dates: start: 2013
  5. COPAXONE [Suspect]
     Active Substance: GLATIRAMER ACETATE
     Dosage: UNK
     Dates: start: 2013

REACTIONS (11)
  - Muscle tightness [Not Recovered/Not Resolved]
  - Abscess [None]
  - Motor dysfunction [None]
  - Cellulitis [None]
  - Sepsis [None]
  - Mobility decreased [None]
  - Vision blurred [Not Recovered/Not Resolved]
  - Muscle spasms [Not Recovered/Not Resolved]
  - Cellulitis [Recovered/Resolved]
  - JC virus infection [Not Recovered/Not Resolved]
  - Visual impairment [None]

NARRATIVE: CASE EVENT DATE: 2013
